FAERS Safety Report 12422712 (Version 2)
Quarter: 2016Q3

REPORT INFORMATION
  Report Type: Spontaneous
  Country: US (occurrence: US)
  Receive Date: 20160601
  Receipt Date: 20160721
  Transmission Date: 20161109
  Serious: Yes (Other)
  Sender: FDA-Public Use
  Company Number: US-ALEXION-A201603752

PATIENT
  Age: 53 Month
  Sex: Female

DRUGS (1)
  1. STRENSIQ [Suspect]
     Active Substance: ASFOTASE ALFA
     Indication: HYPOPHOSPHATASIA
     Dosage: 2 MG/KG, TIW
     Route: 058
     Dates: start: 20160220, end: 20160512

REACTIONS (5)
  - Skin lesion [Unknown]
  - Extraskeletal ossification [Not Recovered/Not Resolved]
  - Blood alkaline phosphatase increased [Unknown]
  - Condition aggravated [Not Recovered/Not Resolved]
  - Vitamin D decreased [Recovered/Resolved]

NARRATIVE: CASE EVENT DATE: 20160513
